FAERS Safety Report 6729111-2 (Version None)
Quarter: 2010Q2

REPORT INFORMATION
  Report Type: 
  Country: None (occurrence: None)
  Receive Date: 20100517
  Receipt Date: 20100326
  Transmission Date: 20101027
  Serious: No
  Sender: FDA-Public Use
  Company Number: US-ABBOTT-10P-163-0634782-00

PATIENT
  Sex: Male
  Weight: 156.63 kg

DRUGS (10)
  1. SIMCOR [Suspect]
     Indication: BLOOD TRIGLYCERIDES INCREASED
     Dosage: 500/20MG
     Route: 048
     Dates: start: 20100324
  2. SIMCOR [Suspect]
     Indication: HIGH DENSITY LIPOPROTEIN DECREASED
  3. SINGULAIR [Concomitant]
     Indication: DRUG USE FOR UNKNOWN INDICATION
  4. TRILIPIX [Concomitant]
     Indication: DRUG USE FOR UNKNOWN INDICATION
  5. ACAI [Concomitant]
     Indication: DRUG USE FOR UNKNOWN INDICATION
  6. SIMCOR [Concomitant]
     Indication: DRUG USE FOR UNKNOWN INDICATION
  7. METFORMIN HYDROCHLORIDE [Concomitant]
     Indication: DRUG USE FOR UNKNOWN INDICATION
  8. VULTURNA [Concomitant]
     Indication: DRUG USE FOR UNKNOWN INDICATION
  9. NEXIUM [Concomitant]
     Indication: DRUG USE FOR UNKNOWN INDICATION
  10. PRIME LEAN [Concomitant]
     Indication: WEIGHT DECREASED

REACTIONS (3)
  - DIZZINESS [None]
  - ERYTHEMA [None]
  - FEELING HOT [None]
